FAERS Safety Report 9693287 (Version 3)
Quarter: 2014Q4

REPORT INFORMATION
  Report Type: Spontaneous
  Country: US (occurrence: None)
  Receive Date: 20131114
  Receipt Date: 20141017
  Transmission Date: 20150529
  Serious: Yes (Other)
  Sender: FDA-Public Use
  Company Number: 2013-US-002783

PATIENT
  Age: 62 Year
  Sex: Female
  Weight: 90.2 kg

DRUGS (5)
  1. XYREM [Suspect]
     Active Substance: SODIUM OXYBATE
     Indication: FIBROMYALGIA
     Dosage: 3 G, BID, ORAL
     Route: 048
     Dates: start: 200509
  2. SIMVASTATIN. [Concomitant]
     Active Substance: SIMVASTATIN
  3. LEVOTHYROXINE [Concomitant]
     Active Substance: LEVOTHYROXINE
  4. ASPIRIN (ACETYLSALICYLIC ACID) [Concomitant]
     Active Substance: ASPIRIN
  5. MIRAPEX [Concomitant]
     Active Substance: PRAMIPEXOLE DIHYDROCHLORIDE

REACTIONS (6)
  - Off label use [None]
  - Myocardial infarction [None]
  - Intestinal obstruction [None]
  - Small intestinal resection [None]
  - Parkinson^s disease [None]
  - Dyspnoea [None]

NARRATIVE: CASE EVENT DATE: 2005
